FAERS Safety Report 6093598-1 (Version None)
Quarter: 2009Q1

REPORT INFORMATION
  Report Type: 
  Country: None (occurrence: None)
  Receive Date: 20090223
  Receipt Date: 20090211
  Transmission Date: 20090719
  Serious: Yes (Other)
  Sender: FDA-Public Use
  Company Number: DSA_33232_2009

PATIENT
  Sex: Female

DRUGS (2)
  1. LORAZEPAM [Suspect]
     Indication: DRUG USE FOR UNKNOWN INDICATION
     Dosage: (2 MG QD ORAL)
     Route: 048
     Dates: start: 20081028, end: 20081107
  2. SEROQUEL [Suspect]
     Indication: DRUG USE FOR UNKNOWN INDICATION
     Dosage: (300 MG QD ORAL)
     Route: 048
     Dates: start: 20081028, end: 20081031

REACTIONS (2)
  - DRUG DEPENDENCE [None]
  - SUPRAVENTRICULAR TACHYCARDIA [None]
